FAERS Safety Report 12228313 (Version 1)
Quarter: 2016Q1

REPORT INFORMATION
  Report Type: Spontaneous
  Country: US (occurrence: None)
  Receive Date: 20160330
  Receipt Date: 20160330
  Transmission Date: 20160526
  Serious: Yes (Hospitalization)
  Sender: FDA-Public Use
  Company Number: None

PATIENT
  Age: 69 Year
  Sex: Female
  Weight: 54.5 kg

DRUGS (2)
  1. GEMCITABINE HYDROCHLORIDE. [Suspect]
     Active Substance: GEMCITABINE HYDROCHLORIDE
     Dates: end: 20160310
  2. PACLITAXEL PROTEIN-BOUND PARTICLES (ALBUMIN-BOUND) [Suspect]
     Active Substance: PACLITAXEL
     Dates: end: 20160310

REACTIONS (6)
  - Blood pressure decreased [None]
  - Dizziness [None]
  - Pneumonia [None]
  - Pyrexia [None]
  - Heart rate increased [None]
  - Atrial fibrillation [None]

NARRATIVE: CASE EVENT DATE: 20160325
